FAERS Safety Report 5386555-1 (Version None)
Quarter: 2007Q3

REPORT INFORMATION
  Report Type: 
  Country: None (occurrence: None)
  Receive Date: 20070713
  Receipt Date: 20070706
  Transmission Date: 20080115
  Serious: Yes (Other)
  Sender: FDA-Public Use
  Company Number: A0651960A

PATIENT
  Age: 64 Year
  Sex: Female

DRUGS (6)
  1. TYKERB [Suspect]
     Indication: BREAST CANCER
     Dosage: 5TAB PER DAY
     Route: 048
     Dates: start: 20070430
  2. XELODA [Concomitant]
  3. BENICAR [Concomitant]
  4. PERCOCET [Concomitant]
  5. OXYCODONE HCL [Concomitant]
  6. LIPITOR [Concomitant]

REACTIONS (7)
  - DIARRHOEA [None]
  - DRY SKIN [None]
  - HYPOAESTHESIA [None]
  - NAUSEA [None]
  - PARAESTHESIA [None]
  - SKIN CHAPPED [None]
  - VISUAL DISTURBANCE [None]
